FAERS Safety Report 7913258-9 (Version None)
Quarter: 2011Q4

REPORT INFORMATION
  Report Type: 
  Country: None (occurrence: None)
  Receive Date: 20111114
  Receipt Date: 20111104
  Transmission Date: 20120403
  Serious: Yes (Other)
  Sender: FDA-Public Use
  Company Number: CN-ASTRAZENECA-2011SE66644

PATIENT

DRUGS (2)
  1. PROPOFOL [Suspect]
     Dosage: 1-1.5 MG/KG
     Route: 042
  2. LIDOCAINE [Suspect]
     Dosage: 10 ML
     Route: 048

REACTIONS (1)
  - UNWANTED AWARENESS DURING ANAESTHESIA [None]
